FAERS Safety Report 4933069-6 (Version None)
Quarter: 2006Q1

REPORT INFORMATION
  Report Type: 
  Country: None (occurrence: None)
  Receive Date: 20060302
  Receipt Date: 20060302
  Transmission Date: 20060701
  Serious: No
  Sender: FDA-Public Use
  Company Number: None

PATIENT
  Age: 62 Year
  Sex: Female
  Weight: 89.7 kg

DRUGS (2)
  1. OXYCONTIN [Suspect]
     Indication: DIABETIC NEPHROPATHY
     Dosage: 60 MG EVERY 8 HOURS PO
     Route: 048
  2. OXYCONTIN [Suspect]
     Indication: POLYMYOSITIS
     Dosage: 60 MG EVERY 8 HOURS PO
     Route: 048

REACTIONS (1)
  - HYPOACUSIS [None]
